FAERS Safety Report 9426932 (Version 1)
Quarter: 2013Q3

REPORT INFORMATION
  Report Type: Report from Study
  Country: GB (occurrence: GB)
  Receive Date: 20130730
  Receipt Date: 20130730
  Transmission Date: 20140515
  Serious: Yes (Hospitalization)
  Sender: FDA-Public Use
  Company Number: GB-JNJFOC-20130714420

PATIENT
  Age: 22 Year
  Sex: Male
  Weight: 57 kg

DRUGS (6)
  1. REMICADE [Suspect]
     Indication: PSORIASIS
     Route: 042
     Dates: start: 20120823
  2. HYDROXYZINE [Concomitant]
     Route: 065
     Dates: start: 20120816
  3. METHOTREXATE [Concomitant]
     Route: 065
     Dates: start: 20120817
  4. FOLIC ACID [Concomitant]
     Route: 065
     Dates: start: 20120816
  5. FLUOXETINE [Concomitant]
     Route: 065
     Dates: start: 20120828
  6. CHOLECALCIFEROL [Concomitant]
     Route: 065
     Dates: start: 20120816

REACTIONS (1)
  - Erythrodermic psoriasis [Recovered/Resolved]
